FAERS Safety Report 7707599-8 (Version None)
Quarter: 2011Q3

REPORT INFORMATION
  Report Type: 
  Country: None (occurrence: None)
  Receive Date: 20110824
  Receipt Date: 20110810
  Transmission Date: 20111222
  Serious: Yes (Other)
  Sender: FDA-Public Use
  Company Number: JP-ALLERGAN-1111198US

PATIENT
  Age: 62 Year
  Sex: Female

DRUGS (1)
  1. LUMIGAN [Suspect]
     Indication: NORMAL TENSION GLAUCOMA
     Dosage: 1 GTT, QD
     Route: 047
     Dates: start: 20100407

REACTIONS (4)
  - GROWTH OF EYELASHES [None]
  - BLEPHARAL PIGMENTATION [None]
  - CONJUNCTIVAL HYPERAEMIA [None]
  - VISUAL FIELD DEFECT [None]
